FAERS Safety Report 6487387-3 (Version None)
Quarter: 2009Q4

REPORT INFORMATION
  Report Type: 
  Country: None (occurrence: None)
  Receive Date: 20091123
  Receipt Date: 20091020
  Transmission Date: 20100525
  Serious: No
  Sender: FDA-Public Use
  Company Number: 8053471

PATIENT
  Age: 51 Year
  Sex: Female
  Weight: 63.5 kg

DRUGS (10)
  1. CIMZIA [Suspect]
     Indication: RHEUMATOID ARTHRITIS
     Dosage: 400 MG 1/2W SC
     Route: 058
     Dates: start: 20090910
  2. MORPHINE SULFATE [Concomitant]
  3. METOPROLOL TARTRATE [Concomitant]
  4. TRAZODONE HCL [Concomitant]
  5. PREVACID [Concomitant]
  6. FOLIC ACID [Concomitant]
  7. BUPROPION HCL [Concomitant]
  8. ASPIRIN [Concomitant]
  9. SKELAXIN [Concomitant]
  10. ACTONEL [Concomitant]

REACTIONS (2)
  - INAPPROPRIATE SCHEDULE OF DRUG ADMINISTRATION [None]
  - INJECTION SITE SWELLING [None]
